FAERS Safety Report 5001981-8 (Version None)
Quarter: 2006Q2

REPORT INFORMATION
  Report Type: 
  Country: None (occurrence: None)
  Receive Date: 20060515
  Receipt Date: 20060504
  Transmission Date: 20061013
  Serious: Yes (Other)
  Sender: FDA-Public Use
  Company Number: FR-JNJFOC-20051205351

PATIENT
  Age: 45 Year
  Sex: Male

DRUGS (12)
  1. REMICADE [Suspect]
     Dosage: 6 INFUSIONS
     Route: 042
  2. REMICADE [Suspect]
     Dosage: 6 INFUSIONS
     Route: 042
  3. REMICADE [Suspect]
     Dosage: 6 INFUSIONS
     Route: 042
  4. REMICADE [Suspect]
     Dosage: 6 INFUSIONS
     Route: 042
  5. REMICADE [Suspect]
     Dosage: 6 INFUSIONS
     Route: 042
  6. REMICADE [Suspect]
     Dosage: 6 INFUSIONS
     Route: 042
  7. REMICADE [Suspect]
     Dosage: 6 INFUSIONS
     Route: 042
  8. REMICADE [Suspect]
     Dosage: 6 INFUSIONS
     Route: 042
  9. REMICADE [Suspect]
     Dosage: 6 INFUSIONS
     Route: 042
  10. REMICADE [Suspect]
     Dosage: 6 INFUSIONS
     Route: 042
  11. REMICADE [Suspect]
     Dosage: 6 INFUSIONS
     Route: 042
  12. REMICADE [Suspect]
     Indication: CROHN'S DISEASE
     Dosage: 6 INFUSIONS
     Route: 042

REACTIONS (9)
  - ABDOMINAL ABSCESS [None]
  - ANTINUCLEAR ANTIBODY POSITIVE [None]
  - ARTHRALGIA [None]
  - CAMPYLOBACTER GASTROENTERITIS [None]
  - CONJUNCTIVITIS [None]
  - CROHN'S DISEASE [None]
  - DRUG EFFECT DECREASED [None]
  - PSORIASIS [None]
  - TYPE IV HYPERSENSITIVITY REACTION [None]
